FAERS Safety Report 7372595-X (Version None)
Quarter: 2011Q1

REPORT INFORMATION
  Report Type: 
  Country: None (occurrence: None)
  Receive Date: 20110324
  Receipt Date: 20110315
  Transmission Date: 20110831
  Serious: Yes (Hospitalization)
  Sender: FDA-Public Use
  Company Number: US-MERCK-1101USA02060

PATIENT
  Age: 76 Year
  Sex: Female

DRUGS (3)
  1. FOSAMAX [Suspect]
     Route: 065
  2. FOSAMAX [Suspect]
     Route: 048
     Dates: start: 20080101, end: 20100101
  3. CELEBREX [Concomitant]
     Route: 065

REACTIONS (2)
  - LOWER LIMB FRACTURE [None]
  - OSTEOARTHRITIS [None]
